FAERS Safety Report 6881575 (Version 2)
Quarter: 2013Q1

REPORT INFORMATION
  Report Type: Spontaneous
  Country: DE (occurrence: None)
  Receive Date: 20081231
  Receipt Date: 20130115
  Transmission Date: 20140127
  Serious: Yes (Hospitalization)
  Sender: FDA-Public Use
  Company Number: 2008AP003561

PATIENT
  Age: 74 Year
  Sex: Female

DRUGS (5)
  1. CARBAMAZEPINE [Suspect]
     Indication: SCHIZOPHRENIFORM DISORDER
     Route: 048
     Dates: start: 20080604, end: 20080608
  2. PERAZINE [Concomitant]
  3. OLANZAPINE (OLANZAPINE) [Concomitant]
  4. HALOPERIDOL (HALOPERIDOL) (HALOPERIDOL) [Concomitant]
  5. CARBAMAZEPINE [Concomitant]

REACTIONS (1)
  - Dermatitis allergic [None]
